FAERS Safety Report 7427988-9 (Version None)
Quarter: 2011Q2

REPORT INFORMATION
  Report Type: 
  Country: None (occurrence: None)
  Receive Date: 20110413
  Receipt Date: 20110408
  Transmission Date: 20111010
  Serious: Yes (Death, Hospitalization)
  Sender: FDA-Public Use
  Company Number: 2011SP014673

PATIENT
  Age: 65 Year
  Sex: Male

DRUGS (9)
  1. FRAGMIN [Concomitant]
  2. ACEMIN [Concomitant]
  3. COMBIVENT [Concomitant]
  4. TEMODAL [Suspect]
     Indication: GLIOBLASTOMA
     Dosage: 140 MG; QD;, 100 MG; QD;
     Dates: start: 20110201, end: 20110228
  5. TEMODAL [Suspect]
     Indication: GLIOBLASTOMA
     Dosage: 140 MG; QD;, 100 MG; QD;
     Dates: start: 20110301, end: 20110302
  6. THEOSPIREX /00012201/ [Concomitant]
  7. FORTECORTIN [Concomitant]
  8. PANTOLOC [Concomitant]
  9. SERETIDE /01420901/ [Concomitant]

REACTIONS (4)
  - PLATELET COUNT DECREASED [None]
  - SEPSIS [None]
  - WHITE BLOOD CELL COUNT DECREASED [None]
  - ANAEMIA [None]
